FAERS Safety Report 26085434 (Version 1)
Quarter: 2025Q4

REPORT INFORMATION
  Report Type: Spontaneous
  Country: US (occurrence: US)
  Receive Date: 20251125
  Receipt Date: 20251125
  Transmission Date: 20260118
  Serious: Yes (Other)
  Sender: ALKEM
  Company Number: US-ALKEM LABORATORIES LIMITED-US-ALKEM-2025-12485

PATIENT

DRUGS (2)
  1. TRIAMCINOLONE ACETONIDE [Suspect]
     Active Substance: TRIAMCINOLONE ACETONIDE
     Indication: Sarcoidosis
     Dosage: 40 MILLIGRAM (IN A VOLUME OF 1 ML THROUGH A 25-GAUGE NEEDLE) (SUB-TENON INJECTION)
  2. TRIAMCINOLONE ACETONIDE [Suspect]
     Active Substance: TRIAMCINOLONE ACETONIDE
     Indication: Cystoid macular oedema

REACTIONS (2)
  - Retinal vascular occlusion [Unknown]
  - Chorioretinal disorder [Unknown]
